FAERS Safety Report 13236873 (Version 4)
Quarter: 2018Q3

REPORT INFORMATION
  Report Type: Report from Study
  Country: US (occurrence: US)
  Receive Date: 20170215
  Receipt Date: 20180927
  Transmission Date: 20181010
  Serious: Yes (Death, Hospitalization, Other)
  Sender: FDA-Public Use
  Company Number: US-BAYER-2016-205685

PATIENT
  Age: 65 Year
  Sex: Male

DRUGS (13)
  1. NEXAVAR [Suspect]
     Active Substance: SORAFENIB
     Indication: HEPATOCELLULAR CARCINOMA
     Dosage: 200 MG, QD
     Route: 048
     Dates: start: 20161007, end: 201610
  2. HUMULIN 70/30 [Concomitant]
     Active Substance: INSULIN HUMAN
     Dosage: 15 UNITS 2 TIMES DAILY
     Route: 058
  3. NEXAVAR [Suspect]
     Active Substance: SORAFENIB
     Indication: HEPATOCELLULAR CARCINOMA
     Dosage: 400 MG, BID
     Route: 048
     Dates: start: 20160929, end: 2016
  4. NEXAVAR [Suspect]
     Active Substance: SORAFENIB
     Indication: HEPATOCELLULAR CARCINOMA
     Dosage: DAILY DOSE 400 MG
     Route: 048
  5. NORVASC [Concomitant]
     Active Substance: AMLODIPINE BESYLATE
     Dosage: 10 MG EVERY EVENING
     Route: 048
  6. NEXAVAR [Suspect]
     Active Substance: SORAFENIB
     Indication: HEPATOCELLULAR CARCINOMA
     Dosage: 400 MG, QD
     Route: 048
     Dates: start: 20161014, end: 20161018
  7. LOPRESSOR [Concomitant]
     Active Substance: METOPROLOL TARTRATE
     Dosage: TAKE 25 MG TOTAL (0.5 TABLETS) 2 TIMES DAILY
     Route: 048
     Dates: start: 20160225
  8. ULTRAM [Concomitant]
     Active Substance: TRAMADOL HYDROCHLORIDE
     Indication: PAIN
     Dosage: TAKE 50 MG EVERY 6 HOURS AS NEEDED
     Route: 048
  9. NEXAVAR [Suspect]
     Active Substance: SORAFENIB
     Indication: HEPATOCELLULAR CARCINOMA
     Dosage: 200 MG DAILY
     Route: 048
  10. NEXAVAR [Suspect]
     Active Substance: SORAFENIB
     Indication: HEPATOCELLULAR CARCINOMA
     Dosage: UNK
     Dates: end: 201702
  11. GLUCOSE [Concomitant]
     Active Substance: DEXTROSE
     Dosage: 1 EACH BY OTHER ROUTE 2 (TWO) TIMES DAILY ACCU CHECK 2X DAILY
  12. NEXAVAR [Suspect]
     Active Substance: SORAFENIB
     Indication: HEPATOCELLULAR CARCINOMA
     Dosage: 400 MG, BID
     Route: 048
     Dates: start: 20160906
  13. PRINIVIL [Concomitant]
     Active Substance: LISINOPRIL
     Dosage: 40 MG, QD
     Route: 048

REACTIONS (27)
  - Azotaemia [None]
  - Nephrolithiasis [None]
  - Atrial fibrillation [None]
  - Hyponatraemia [None]
  - Splenomegaly [None]
  - Acute hepatic failure [Fatal]
  - Hypothermia [None]
  - Insomnia [Recovering/Resolving]
  - Blood pressure increased [Recovering/Resolving]
  - Liver function test increased [None]
  - Hypomagnesaemia [None]
  - Blood test abnormal [Not Recovered/Not Resolved]
  - Bile duct obstruction [None]
  - Acute kidney injury [None]
  - Hypotension [None]
  - Jaundice [None]
  - Pruritus [Recovered/Resolved]
  - Off label use [None]
  - Lactic acidosis [None]
  - Pancreatic mass [None]
  - Coagulopathy [None]
  - Constipation [Recovered/Resolved]
  - Malignant ascites [None]
  - Acidosis [None]
  - Septic shock [Fatal]
  - Erythema [Recovering/Resolving]
  - Lymphadenopathy [None]

NARRATIVE: CASE EVENT DATE: 201610
